FAERS Safety Report 9492809 (Version 2)
Quarter: 2013Q3

REPORT INFORMATION
  Report Type: Spontaneous
  Country: US (occurrence: US)
  Receive Date: 20130830
  Receipt Date: 20130924
  Transmission Date: 20140515
  Serious: Yes (Death, Other)
  Sender: FDA-Public Use
  Company Number: US-GILEAD-2013-0082289

PATIENT
  Sex: Female

DRUGS (4)
  1. LETAIRIS [Suspect]
     Indication: PULMONARY HYPERTENSION
     Dosage: 5 MG, QD
     Route: 048
     Dates: start: 20121211
  2. LETAIRIS [Suspect]
     Indication: SCLERODERMA
  3. REVATIO [Concomitant]
  4. REMODULIN [Concomitant]

REACTIONS (1)
  - Right ventricular failure [Fatal]
